FAERS Safety Report 7035306-3 (Version None)
Quarter: 2010Q4

REPORT INFORMATION
  Report Type: 
  Country: None (occurrence: None)
  Receive Date: 20101008
  Receipt Date: 20100930
  Transmission Date: 20110411
  Serious: Yes (Disabling)
  Sender: FDA-Public Use
  Company Number: B0677043A

PATIENT
  Sex: Female

DRUGS (2)
  1. IMIJECT [Suspect]
     Indication: CLUSTER HEADACHE
     Route: 058
     Dates: start: 20070101
  2. ISOPTIN [Suspect]
     Indication: CLUSTER HEADACHE
     Route: 048
     Dates: start: 20070101

REACTIONS (1)
  - VISUAL FIELD DEFECT [None]
